FAERS Safety Report 8499456-7 (Version None)
Quarter: 2012Q2

REPORT INFORMATION
  Report Type: 
  Country: None (occurrence: None)
  Receive Date: 20120618
  Receipt Date: 20120604
  Transmission Date: 20120825
  Serious: Yes (Hospitalization)
  Sender: FDA-Public Use
  Company Number: 2012PROUSA01446

PATIENT
  Age: 82 Year
  Sex: Male
  Weight: 79.4 kg

DRUGS (12)
  1. LISINOPRIL [Concomitant]
  2. CALCIUM +D (CALCIUM CARBONATE, COLECALCIFEROL) [Concomitant]
  3. PROVENGE [Concomitant]
  4. PROVENGE [Suspect]
     Dosage: 250 ML, SINGLE, INTRAVENOUS; 250 ML, SINGLE, INTRAVENOUS
     Route: 042
     Dates: start: 20120514, end: 20120514
  5. PROVENGE [Suspect]
     Dosage: 250 ML, SINGLE, INTRAVENOUS; 250 ML, SINGLE, INTRAVENOUS
     Route: 042
     Dates: start: 20120430, end: 20120430
  6. TRICOR [Concomitant]
  7. LIPITOR [Concomitant]
  8. METOPROLOL SUCCINATE [Concomitant]
  9. SIMVASTATIN [Concomitant]
  10. ASPIRIN [Concomitant]
  11. GLIMEPIRIDE [Concomitant]
  12. JANUMET (METFORMIN HYDROCHLORIDE, SITAGLIPTIN PHOSPHATE MONOHYDRATE) [Concomitant]

REACTIONS (1)
  - MYOCARDIAL INFARCTION [None]
